FAERS Safety Report 18164685 (Version 1)
Quarter: 2020Q3

REPORT INFORMATION
  Report Type: Spontaneous
  Country: AR (occurrence: AR)
  Receive Date: 20200819
  Receipt Date: 20200819
  Transmission Date: 20201103
  Serious: Yes (Other)
  Sender: FDA-Public Use
  Company Number: AR-PFIZER INC-2020318835

PATIENT
  Age: 65 Year
  Sex: Male

DRUGS (1)
  1. INLYTA [Suspect]
     Active Substance: AXITINIB
     Indication: RENAL CANCER
     Dosage: 5 MG, CYCLIC (DAILY)
     Dates: start: 20200326, end: 202005

REACTIONS (6)
  - Off label use [Unknown]
  - Malaise [Recovered/Resolved]
  - SARS-CoV-2 test positive [Recovered/Resolved]
  - Retinopathy [Recovered/Resolved]
  - Inappropriate schedule of product administration [Unknown]
  - Visual impairment [Recovered/Resolved]

NARRATIVE: CASE EVENT DATE: 20200326
